FAERS Safety Report 18251951 (Version 10)
Quarter: 2025Q2

REPORT INFORMATION
  Report Type: Report from Study
  Country: US (occurrence: US)
  Receive Date: 20200910
  Receipt Date: 20250617
  Transmission Date: 20250716
  Serious: Yes (Other)
  Sender: TAKEDA
  Company Number: US-SHIRE-US202029314

PATIENT
  Age: 69 Year
  Sex: Male
  Weight: 76 kg

DRUGS (37)
  1. HUMAN IMMUNOGLOBULIN G\HYALURONIDASE RECOMBINANT HUMAN [Suspect]
     Active Substance: HUMAN IMMUNOGLOBULIN G\HYALURONIDASE (HUMAN RECOMBINANT)
     Indication: Immunodeficiency common variable
     Dosage: 35 GRAM, Q5WEEKS
     Dates: start: 20130807
  2. HUMAN IMMUNOGLOBULIN G\HYALURONIDASE RECOMBINANT HUMAN [Suspect]
     Active Substance: HUMAN IMMUNOGLOBULIN G\HYALURONIDASE (HUMAN RECOMBINANT)
     Dosage: 35 GRAM, Q4WEEKS
     Dates: start: 20171112
  3. HUMAN IMMUNOGLOBULIN G\HYALURONIDASE RECOMBINANT HUMAN [Suspect]
     Active Substance: HUMAN IMMUNOGLOBULIN G\HYALURONIDASE (HUMAN RECOMBINANT)
  4. DIPHENHYDRAMINE HYDROCHLORIDE [Concomitant]
     Active Substance: DIPHENHYDRAMINE HYDROCHLORIDE
  5. PREDNISONE [Concomitant]
     Active Substance: PREDNISONE
  6. NAMENDA [Concomitant]
     Active Substance: MEMANTINE HYDROCHLORIDE
  7. LIDOCAINE\PRILOCAINE [Concomitant]
     Active Substance: LIDOCAINE\PRILOCAINE
  8. PERCOCET [Concomitant]
     Active Substance: ACETAMINOPHEN\OXYCODONE HYDROCHLORIDE
  9. VENLAFAXINE HCL [Concomitant]
     Active Substance: VENLAFAXINE HYDROCHLORIDE
  10. OMEPRAZOLE [Concomitant]
     Active Substance: OMEPRAZOLE
  11. SODIUM CHLORIDE [Concomitant]
     Active Substance: SODIUM CHLORIDE
  12. XARELTO [Concomitant]
     Active Substance: RIVAROXABAN
  13. LEVETIRACETAM [Concomitant]
     Active Substance: LEVETIRACETAM
  14. ASPIRIN [Concomitant]
     Active Substance: ASPIRIN
  15. HYDROXYZINE HYDROCHLORIDE [Concomitant]
     Active Substance: HYDROXYZINE HYDROCHLORIDE
  16. POTASSIUM CITRATE [Concomitant]
     Active Substance: POTASSIUM CITRATE
  17. FLUCONAZOLE [Concomitant]
     Active Substance: FLUCONAZOLE
  18. CYPROHEPTADINE HYDROCHLORIDE [Concomitant]
     Active Substance: CYPROHEPTADINE HYDROCHLORIDE
  19. LISINOPRIL [Concomitant]
     Active Substance: LISINOPRIL
  20. TOPAMAX [Concomitant]
     Active Substance: TOPIRAMATE
  21. OXYBUTYNIN CHLORIDE [Concomitant]
     Active Substance: OXYBUTYNIN CHLORIDE
  22. PRAVASTATIN SODIUM [Concomitant]
     Active Substance: PRAVASTATIN SODIUM
  23. EPINEPHRINE [Concomitant]
     Active Substance: EPINEPHRINE
  24. POTASSIUM [Concomitant]
     Active Substance: POTASSIUM
  25. ACETAMINOPHEN [Concomitant]
     Active Substance: ACETAMINOPHEN
  26. ALBUTEROL SULFATE [Concomitant]
     Active Substance: ALBUTEROL SULFATE
  27. Mometasone furoate Iwaki [Concomitant]
  28. VITAMIN D3 [Concomitant]
     Active Substance: CHOLECALCIFEROL
  29. GABAPENTIN [Concomitant]
     Active Substance: GABAPENTIN
  30. BREZTRI [Concomitant]
     Active Substance: BUDESONIDE\FORMOTEROL\GLYCOPYRROLATE
  31. CHLORDIAZEPOXIDE HYDROCHLORIDE [Concomitant]
     Active Substance: CHLORDIAZEPOXIDE HYDROCHLORIDE
  32. TEMAZEPAM [Concomitant]
     Active Substance: TEMAZEPAM
  33. MONTELUKAST SODIUM [Concomitant]
     Active Substance: MONTELUKAST SODIUM
  34. PROMETHAZINE HYDROCHLORIDE [Concomitant]
     Active Substance: PROMETHAZINE HYDROCHLORIDE
  35. VITAMIN C [Concomitant]
     Active Substance: ASCORBIC ACID
  36. AMITRIPTYLINE HYDROCHLORIDE [Concomitant]
     Active Substance: AMITRIPTYLINE HYDROCHLORIDE
  37. Allergy relief [Concomitant]

REACTIONS (22)
  - Dementia [Unknown]
  - Sinusitis [Not Recovered/Not Resolved]
  - Infusion related reaction [Unknown]
  - Seasonal allergy [Unknown]
  - Somnolence [Unknown]
  - Feeling abnormal [Unknown]
  - Gastrointestinal disorder [Unknown]
  - Product physical issue [Unknown]
  - Needle issue [Unknown]
  - Product administration error [Unknown]
  - Product dose omission issue [Unknown]
  - Inappropriate schedule of product administration [Unknown]
  - Rhinorrhoea [Unknown]
  - Dyspepsia [Unknown]
  - Cough [Unknown]
  - Injection site mass [Unknown]
  - Dizziness [Unknown]
  - Abdominal pain upper [Unknown]
  - Infusion site pain [Unknown]
  - Infusion site pruritus [Unknown]
  - Headache [Unknown]
  - Nausea [Unknown]

NARRATIVE: CASE EVENT DATE: 20201106
